FAERS Safety Report 7740617-X (Version None)
Quarter: 2011Q3

REPORT INFORMATION
  Report Type: 
  Country: None (occurrence: None)
  Receive Date: 20110909
  Receipt Date: 20110905
  Transmission Date: 20111222
  Serious: Yes (Other)
  Sender: FDA-Public Use
  Company Number: US-PFIZER INC-2011209308

PATIENT
  Age: 61 Year
  Sex: Male
  Weight: 105.2 kg

DRUGS (9)
  1. ATORVASTATIN CALCIUM [Interacting]
     Indication: ATRIAL FIBRILLATION
     Dosage: 40 MG DAILY
     Route: 048
  2. EZETIMIBE [Concomitant]
     Dosage: 10 MG DAILY
     Route: 048
  3. PANTOPRAZOLE [Concomitant]
     Dosage: 40 MG DAILY
     Route: 048
  4. SIMVASTATIN [Concomitant]
     Dosage: 80 MG, DAILY
     Route: 048
  5. TESTOSTERONE [Concomitant]
     Dosage: 50 MG/5 G TOPICALLY ONCE DAILY
     Route: 061
  6. DILTIAZEM HCL [Suspect]
     Indication: ATRIAL FIBRILLATION
     Dosage: 240 MG, UNK
     Route: 048
  7. CITALOPRAM HYDROBROMIDE [Interacting]
     Dosage: 10 MG, UNK
     Route: 048
  8. ATENOLOL [Concomitant]
     Indication: ATRIAL FIBRILLATION
     Dosage: 25 MG DAILY
     Route: 048
  9. ACETYLSALICYLIC ACID [Concomitant]
     Indication: ATRIAL FIBRILLATION
     Dosage: 325 MG DAILY
     Route: 048

REACTIONS (2)
  - MYOCLONUS [None]
  - DRUG INTERACTION [None]
